FAERS Safety Report 4595726-3 (Version None)
Quarter: 2005Q1

REPORT INFORMATION
  Report Type: 
  Country: None (occurrence: None)
  Receive Date: 20050302
  Receipt Date: 20050218
  Transmission Date: 20050727
  Serious: Yes (Other)
  Sender: FDA-Public Use
  Company Number: 200511767GDDC

PATIENT
  Age: 63 Year
  Sex: Female

DRUGS (9)
  1. LEFLUNOMIDE [Suspect]
     Route: 048
  2. NYSTATIN [Suspect]
     Dosage: DOSE: UNK
  3. OXYCODONE HCL [Suspect]
     Dosage: DOSE: UNK
  4. PREDNISONE [Suspect]
     Dosage: DOSE: UNK
  5. ENBREL [Suspect]
     Dosage: DOSE: UNK
  6. LEVOTHYROXINE [Concomitant]
     Dosage: DOSE: UNK
  7. PAROXETINE [Concomitant]
     Dosage: DOSE: UNK
  8. AMLODIPINE [Concomitant]
     Dosage: DOSE: UNK
  9. LANSOPRAZOLE [Concomitant]

REACTIONS (15)
  - ABDOMINAL PAIN [None]
  - ARTHRALGIA [None]
  - CARDIAC FAILURE CONGESTIVE [None]
  - CARDIOMEGALY [None]
  - HYPERTENSION [None]
  - HYPOTENSION [None]
  - HYPOXIA [None]
  - JOINT EFFUSION [None]
  - NAUSEA [None]
  - RECTAL HAEMORRHAGE [None]
  - RENAL FAILURE ACUTE [None]
  - RESPIRATORY FAILURE [None]
  - SEPSIS [None]
  - SHOCK [None]
  - VOMITING [None]
